FAERS Safety Report 17987819 (Version 2)
Quarter: 2021Q1

REPORT INFORMATION
  Report Type: Spontaneous
  Country: US (occurrence: US)
  Receive Date: 20200707
  Receipt Date: 20210112
  Transmission Date: 20210419
  Serious: Yes (Other)
  Sender: FDA-Public Use
  Company Number: US-ASTRAZENECA-2020SE84369

PATIENT
  Age: 68 Year
  Sex: Female
  Weight: 86.2 kg

DRUGS (79)
  1. DOXYCYCLINE. [Concomitant]
     Active Substance: DOXYCYCLINE
     Indication: ANTIBIOTIC LEVEL
  2. GENTAMICIN. [Concomitant]
     Active Substance: GENTAMICIN
  3. DIAZEPAM. [Concomitant]
     Active Substance: DIAZEPAM
  4. ALPRAZOLAM. [Concomitant]
     Active Substance: ALPRAZOLAM
  5. BENADRYL [Concomitant]
     Active Substance: DIPHENHYDRAMINE HYDROCHLORIDE
  6. CODEINE [Concomitant]
     Active Substance: CODEINE
  7. SULFA [Concomitant]
     Active Substance: UNSPECIFIED INGREDIENT
  8. EMYCIN [Concomitant]
     Active Substance: ERYTHROMYCIN
  9. ERYTHROMYCIN. [Concomitant]
     Active Substance: ERYTHROMYCIN
  10. SINGULAIR [Concomitant]
     Active Substance: MONTELUKAST SODIUM
  11. ABILIFY [Concomitant]
     Active Substance: ARIPIPRAZOLE
  12. DULCOLAX NOS [Concomitant]
     Active Substance: BISACODYL OR DOCUSATE SODIUM
  13. NEXIUM [Suspect]
     Active Substance: ESOMEPRAZOLE MAGNESIUM
     Indication: GASTROOESOPHAGEAL REFLUX DISEASE
     Dosage: 40.0MG UNKNOWN
     Route: 048
  14. PRILOSEC [Suspect]
     Active Substance: OMEPRAZOLE MAGNESIUM
     Indication: GASTROOESOPHAGEAL REFLUX DISEASE
     Dosage: GENERIC
     Route: 048
     Dates: start: 20110301, end: 20110302
  15. ACETAMINOPHEN. [Concomitant]
     Active Substance: ACETAMINOPHEN
  16. VENLAFAXINE [Concomitant]
     Active Substance: VENLAFAXINE HYDROCHLORIDE
  17. LASIX [Concomitant]
     Active Substance: FUROSEMIDE
  18. ACIPHEX [Concomitant]
     Active Substance: RABEPRAZOLE SODIUM
  19. METOPROLOL. [Concomitant]
     Active Substance: METOPROLOL
  20. AMPICILLIN [Concomitant]
     Active Substance: AMPICILLIN
  21. GLUCAGON. [Concomitant]
     Active Substance: GLUCAGON
  22. EFFEXOR [Concomitant]
     Active Substance: VENLAFAXINE HYDROCHLORIDE
  23. LIOTHYRONINE [Concomitant]
     Active Substance: LIOTHYRONINE
  24. XYLOCAINE [Concomitant]
     Active Substance: LIDOCAINE HYDROCHLORIDE
  25. PROTONIX [Suspect]
     Active Substance: PANTOPRAZOLE SODIUM
     Indication: GASTROOESOPHAGEAL REFLUX DISEASE
     Route: 065
     Dates: start: 201401, end: 201812
  26. PROTONIX [Suspect]
     Active Substance: PANTOPRAZOLE SODIUM
     Indication: GASTROOESOPHAGEAL REFLUX DISEASE
     Dosage: 40.0MG UNKNOWN
     Route: 065
  27. WARFARIN SODIUM. [Concomitant]
     Active Substance: WARFARIN SODIUM
  28. MORPHINE [Concomitant]
     Active Substance: MORPHINE
  29. PROMETHAZINE [Concomitant]
     Active Substance: PROMETHAZINE HYDROCHLORIDE
  30. ONDANSETRON [Concomitant]
     Active Substance: ONDANSETRON
  31. LIDOCAINE. [Concomitant]
     Active Substance: LIDOCAINE
  32. FENTANYL. [Concomitant]
     Active Substance: FENTANYL
  33. PROTHROMBIN [Concomitant]
     Active Substance: PROTHROMBIN
  34. ZELNORM [Concomitant]
     Active Substance: TEGASEROD MALEATE
  35. ZOFRAN [Concomitant]
     Active Substance: ONDANSETRON HYDROCHLORIDE
  36. MAALOX ANTACID [Concomitant]
     Active Substance: ALUMINUM HYDROXIDE\DIMETHICONE\MAGNESIUM HYDROXIDE
  37. AUGMENTIN [Concomitant]
     Active Substance: AMOXICILLIN\CLAVULANATE POTASSIUM
  38. CEPACOL [Concomitant]
     Active Substance: BENZOCAINE
  39. TUMS [Concomitant]
     Active Substance: CALCIUM CARBONATE
  40. OXYCODONE?ACETAMINOPHENIUM [Concomitant]
  41. OXYCODONE [Concomitant]
     Active Substance: OXYCODONE
  42. MOMETASONE [Concomitant]
     Active Substance: MOMETASONE
  43. VICODIN [Concomitant]
     Active Substance: ACETAMINOPHEN\HYDROCODONE BITARTRATE
  44. PROPULSID [Concomitant]
     Active Substance: CISAPRIDE
  45. RANITIDINE. [Concomitant]
     Active Substance: RANITIDINE
  46. FAMOTIDINE. [Concomitant]
     Active Substance: FAMOTIDINE
  47. HYDROMORPHONE [Concomitant]
     Active Substance: HYDROMORPHONE
  48. ALBUTEROL. [Concomitant]
     Active Substance: ALBUTEROL
  49. FLUTICASONE?SALMETEROL [Concomitant]
  50. CEFAZOLIN [Concomitant]
     Active Substance: CEFAZOLIN
  51. ATROPINE. [Concomitant]
     Active Substance: ATROPINE
  52. FLUNISOLIDE. [Concomitant]
     Active Substance: FLUNISOLIDE
  53. DECADRON [Concomitant]
     Active Substance: DEXAMETHASONE
  54. REGLAN [Concomitant]
     Active Substance: METOCLOPRAMIDE HYDROCHLORIDE
  55. OXYCODONE HYDROCHLORIDE. [Concomitant]
     Active Substance: OXYCODONE HYDROCHLORIDE
  56. SUPREP BOWEL PREP [Concomitant]
     Active Substance: MAGNESIUM SULFATE\POTASSIUM SULFATE\SODIUM SULFATE
  57. FLONASE [Concomitant]
     Active Substance: FLUTICASONE PROPIONATE
  58. VERSED [Concomitant]
     Active Substance: MIDAZOLAM HYDROCHLORIDE
  59. MIRALAX [Concomitant]
     Active Substance: POLYETHYLENE GLYCOL 3350
  60. FORMOTEROL [Concomitant]
     Active Substance: FORMOTEROL
  61. CLARITIN [Concomitant]
     Active Substance: LORATADINE
  62. NEXIUM [Suspect]
     Active Substance: ESOMEPRAZOLE MAGNESIUM
     Indication: GASTROOESOPHAGEAL REFLUX DISEASE
     Route: 048
     Dates: start: 201401, end: 201812
  63. METOPROLOL TARTRATE. [Concomitant]
     Active Substance: METOPROLOL TARTRATE
  64. SODIUM CHLORIDE. [Concomitant]
     Active Substance: SODIUM CHLORIDE
  65. COSE [Concomitant]
  66. GLUCOSE [Concomitant]
     Active Substance: DEXTROSE
  67. CIPROFLOXACIN. [Concomitant]
     Active Substance: CIPROFLOXACIN
  68. FLUMAZENIL. [Concomitant]
     Active Substance: FLUMAZENIL
  69. LYRICA [Concomitant]
     Active Substance: PREGABALIN
  70. MILK OF MAGNESIA [Concomitant]
     Active Substance: MAGNESIUM HYDROXIDE
  71. PRILOSEC [Suspect]
     Active Substance: OMEPRAZOLE MAGNESIUM
     Indication: GASTROOESOPHAGEAL REFLUX DISEASE
     Route: 048
  72. ASPIRIN. [Concomitant]
     Active Substance: ASPIRIN
     Indication: CARDIAC DISORDER
  73. NORTRIPTYLINE HCL [Concomitant]
     Active Substance: NORTRIPTYLINE HYDROCHLORIDE
  74. IPRATROPIUM [Concomitant]
     Active Substance: IPRATROPIUM
  75. AMOXICILLIN. [Concomitant]
     Active Substance: AMOXICILLIN
  76. DEMEROL [Concomitant]
     Active Substance: MEPERIDINE HYDROCHLORIDE
  77. ASMANEX [Concomitant]
     Active Substance: MOMETASONE FUROATE
  78. DOCUSATE CALCIUM. [Concomitant]
     Active Substance: DOCUSATE CALCIUM
  79. SUMA [Concomitant]

REACTIONS (3)
  - End stage renal disease [Unknown]
  - Chronic kidney disease [Not Recovered/Not Resolved]
  - Renal failure [Unknown]

NARRATIVE: CASE EVENT DATE: 2018
